FAERS Safety Report 9841909 (Version 2)
Quarter: 2014Q1

REPORT INFORMATION
  Report Type: Spontaneous
  Country: MY (occurrence: MY)
  Receive Date: 20140124
  Receipt Date: 20140325
  Transmission Date: 20141002
  Serious: Yes (Other)
  Sender: FDA-Public Use
  Company Number: MY-PFIZER INC-2014019109

PATIENT
  Age: 20 Year
  Sex: Male
  Weight: 50 kg

DRUGS (5)
  1. DILANTIN [Suspect]
     Indication: EPILEPSY
     Dosage: 100 MG, 3X/DAY
     Route: 042
     Dates: start: 20120901, end: 20120905
  2. DILANTIN [Suspect]
     Indication: EPILEPSY
     Dosage: 300 MG, 1X/DAY
     Route: 048
     Dates: start: 20120906, end: 20120915
  3. VALPROATE SODIUM [Suspect]
     Indication: CONVULSION
     Dosage: 200 MG, 2X/DAY
  4. FOLATE [Concomitant]
     Dosage: 5 MG, OD
  5. CALCIUM LACTATE [Concomitant]
     Dosage: 600 MG, OD

REACTIONS (4)
  - Neutropenia [Unknown]
  - Thrombocytopenia [Unknown]
  - Rash [Recovered/Resolved]
  - Hepatitis [Unknown]
